FAERS Safety Report 11303936 (Version 1)
Quarter: 2015Q3

REPORT INFORMATION
  Report Type: Spontaneous
  Country: US (occurrence: US)
  Receive Date: 20150723
  Receipt Date: 20150723
  Transmission Date: 20151125
  Serious: No
  Sender: FDA-Public Use
  Company Number: US-JNJFOC-20150201096

PATIENT
  Age: 90 Year
  Sex: Male
  Weight: 65.77 kg

DRUGS (2)
  1. ZYRTEC [Suspect]
     Active Substance: CETIRIZINE HYDROCHLORIDE
     Indication: HEAD DISCOMFORT
     Dosage: 1 TABLET, DAILY, IN THE MORNING
     Route: 048
     Dates: start: 20150129
  2. ZYRTEC [Suspect]
     Active Substance: CETIRIZINE HYDROCHLORIDE
     Indication: SNEEZING
     Dosage: 1 TABLET, DAILY, IN THE MORNING
     Route: 048
     Dates: start: 20150129

REACTIONS (2)
  - Dizziness [Not Recovered/Not Resolved]
  - Head discomfort [Not Recovered/Not Resolved]
